APPROVED DRUG PRODUCT: SEEBRI NEOHALER
Active Ingredient: GLYCOPYRROLATE
Strength: 15.6MCG/INH
Dosage Form/Route: POWDER;INHALATION
Application: N207923 | Product #001
Applicant: NOVARTIS PHARMACEUTICALS CORP
Approved: Oct 29, 2015 | RLD: Yes | RS: No | Type: DISCN

PATENTS:
Patent 8479730 | Expires: Oct 11, 2028
Patent 8182838 | Expires: Oct 20, 2028